FAERS Safety Report 4992683-2 (Version None)
Quarter: 2006Q2

REPORT INFORMATION
  Report Type: 
  Country: None (occurrence: None)
  Receive Date: 20060504
  Receipt Date: 20060426
  Transmission Date: 20061013
  Serious: Yes (Other)
  Sender: FDA-Public Use
  Company Number: MW-BOEHRINGER INGELHEIM PHARMACEUTICALS, INC.-2006-DE-02104GD

PATIENT

DRUGS (3)
  1. NEVIRAPINE [Suspect]
     Indication: HIV INFECTION
  2. ZIDOVUDINE [Suspect]
     Indication: HIV INFECTION
  3. ANTI-HIV DRUGS [Suspect]
     Indication: HIV INFECTION

REACTIONS (5)
  - ANAEMIA [None]
  - DRUG INTOLERANCE [None]
  - HEPATOTOXICITY [None]
  - NEUTROPENIA [None]
  - SKIN TOXICITY [None]
